FAERS Safety Report 22590905 (Version 1)
Quarter: 2023Q2

REPORT INFORMATION
  Report Type: Spontaneous
  Country: BR (occurrence: None)
  Receive Date: 20230612
  Receipt Date: 20230612
  Transmission Date: 20230721
  Serious: Yes (Hospitalization, Other)
  Sender: FDA-Public Use
  Company Number: 2023A132787

PATIENT
  Age: 49 Year
  Sex: Male
  Weight: 84 kg

DRUGS (8)
  1. METOPROLOL SUCCINATE [Suspect]
     Active Substance: METOPROLOL SUCCINATE
     Dosage: A TABLET
     Route: 048
  2. CALQUENCE [Suspect]
     Active Substance: ACALABRUTINIB
     Indication: Mantle cell lymphoma
     Dosage: TWO TABLETS
     Route: 048
     Dates: start: 2020
  3. TREZOR [Concomitant]
     Indication: Blood cholesterol
     Dosage: FOUR TABLETS
  4. CARDIZEM [Concomitant]
     Active Substance: DILTIAZEM HYDROCHLORIDE
     Dosage: A TABLET
  5. PHENOBARBITAL [Concomitant]
     Active Substance: PHENOBARBITAL
     Dosage: A TABLET
  6. ANAFRANIL [Concomitant]
     Active Substance: CLOMIPRAMINE HYDROCHLORIDE
     Dosage: A TABLET
  7. XARELTO [Concomitant]
     Active Substance: RIVAROXABAN
     Dosage: A TABLET
  8. SPIRONOLACTONE [Concomitant]
     Active Substance: SPIRONOLACTONE
     Dosage: A TABLET

REACTIONS (3)
  - Mantle cell lymphoma [Unknown]
  - Anaemia [Not Recovered/Not Resolved]
  - Pneumonia [Not Recovered/Not Resolved]

NARRATIVE: CASE EVENT DATE: 20070101
